FAERS Safety Report 4554534-X (Version None)
Quarter: 2005Q1

REPORT INFORMATION
  Report Type: 
  Country: None (occurrence: None)
  Receive Date: 20041227
  Receipt Date: 20041029
  Transmission Date: 20050727
  Serious: No
  Sender: FDA-Public Use
  Company Number: SP00349

PATIENT
  Age: 66 Year
  Sex: Female
  Weight: 53.978 kg

DRUGS (12)
  1. RIFAXIMIN (TABLETS) [Suspect]
     Indication: OVERGROWTH BACTERIAL
     Dosage: SEE IMAGE
     Route: 048
     Dates: start: 20040923, end: 20040925
  2. RIFAXIMIN (TABLETS) [Suspect]
     Indication: OVERGROWTH BACTERIAL
     Dosage: SEE IMAGE
     Route: 048
     Dates: start: 20040926, end: 20041005
  3. BENEFIBER [Concomitant]
  4. ASPIRIN [Concomitant]
  5. VITAMIN C [Concomitant]
  6. VITAMIN E [Concomitant]
  7. FOLIC ACID [Concomitant]
  8. CALCIUM WITH VITAMIN D [Concomitant]
  9. VIOXX [Concomitant]
  10. NEXIUM [Concomitant]
  11. PRE-NATAL ADVANCE TABS [Concomitant]
  12. VAGIFEM [Concomitant]

REACTIONS (5)
  - CONDITION AGGRAVATED [None]
  - GASTROINTESTINAL PAIN [None]
  - HEADACHE [None]
  - LETHARGY [None]
  - NAUSEA [None]
